FAERS Safety Report 8927777 (Version 1)
Quarter: 2012Q4

REPORT INFORMATION
  Report Type: 
  Country: US (occurrence: US)
  Receive Date: 20121126
  Receipt Date: 20121126
  Transmission Date: 20130627
  Serious: No
  Sender: FDA-Public Use
  Company Number: US-VERTEX PHARMACEUTICAL INC.-2012-024756

PATIENT
  Sex: Female
  Weight: 76 kg

DRUGS (3)
  1. VX-950 (TELAPREVIR) [Suspect]
     Indication: HEPATITIS C
     Dosage: 750 mg, tid
     Route: 048
     Dates: start: 2012, end: 201208
  2. RIBAPAK [Concomitant]
     Indication: HEPATITIS C
     Dosage: 600 am, 400 mg pm, bid
     Route: 048
     Dates: start: 2012, end: 20121113
  3. PEGASYS [Concomitant]
     Indication: HEPATITIS C
     Dosage: 180 ?g, UNK
     Route: 058
     Dates: start: 2012, end: 20121113

REACTIONS (1)
  - Renal disorder [Unknown]
